FAERS Safety Report 4510022-8 (Version None)
Quarter: 2004Q4

REPORT INFORMATION
  Report Type: 
  Country: None (occurrence: None)
  Receive Date: 20041119
  Receipt Date: 20041105
  Transmission Date: 20050328
  Serious: Yes (Death)
  Sender: FDA-Public Use
  Company Number: 8007651

PATIENT
  Age: 20 Year
  Sex: 0
  Weight: 78 kg

DRUGS (2)
  1. KEPPRA [Suspect]
     Indication: EPILEPSY
     Dosage: 500 MCG 2/D PO
     Route: 048
     Dates: start: 20040121
  2. LAMOTRIGINE [Concomitant]

REACTIONS (5)
  - CIRCULATORY COLLAPSE [None]
  - LARYNGEAL DISORDER [None]
  - MYOCARDIAL ISCHAEMIA [None]
  - MYOCARDITIS [None]
  - PULMONARY CONGESTION [None]
